FAERS Safety Report 10366622 (Version 2)
Quarter: 2016Q1

REPORT INFORMATION
  Report Type: Spontaneous
  Country: US (occurrence: US)
  Receive Date: 20140806
  Receipt Date: 20160303
  Transmission Date: 20160525
  Serious: Yes (Other)
  Sender: FDA-Public Use
  Company Number: US-ABBVIE-14P-163-1266441-00

PATIENT
  Age: 49 Year
  Sex: Male

DRUGS (1)
  1. ANDROGEL [Suspect]
     Active Substance: TESTOSTERONE
     Indication: BLOOD TESTOSTERONE DECREASED
     Route: 061
     Dates: start: 201212

REACTIONS (13)
  - Physical disability [Unknown]
  - Muscle spasms [Unknown]
  - Economic problem [Unknown]
  - Chest pain [Unknown]
  - Visual impairment [Unknown]
  - Injury [Unknown]
  - Impaired work ability [Unknown]
  - Pulmonary embolism [Unknown]
  - Dizziness [Unknown]
  - Headache [Unknown]
  - Emotional distress [Unknown]
  - Myocardial infarction [Unknown]
  - Nausea [Unknown]
